FAERS Safety Report 15769670 (Version 1)
Quarter: 2018Q4

REPORT INFORMATION
  Report Type: Spontaneous
  Country: IT (occurrence: IT)
  Receive Date: 20181228
  Receipt Date: 20181228
  Transmission Date: 20190205
  Serious: Yes (Hospitalization, Other)
  Sender: FDA-Public Use
  Company Number: IT-AUROBINDO-AUR-APL-2017-43670

PATIENT
  Age: 69 Year
  Sex: Male
  Weight: 75 kg

DRUGS (4)
  1. FLUOROURACIL EBEWE [Suspect]
     Active Substance: FLUOROURACIL
     Indication: COLORECTAL CANCER METASTATIC
     Dosage: 1 DOSAGE FORM, CYCLICAL
     Route: 042
     Dates: start: 20160705
  2. OXALIPLATIN. [Suspect]
     Active Substance: OXALIPLATIN
     Indication: COLORECTAL CANCER METASTATIC
     Dosage: 1 DF, CYCLIC
     Route: 042
     Dates: start: 20160705
  3. VECTIBIX [Suspect]
     Active Substance: PANITUMUMAB
     Indication: COLORECTAL CANCER METASTATIC
     Dosage: 400 MILLIGRAM, CYCLICAL
     Route: 042
     Dates: start: 20160705, end: 20170502
  4. FOLIC ACID CALCIUM [Suspect]
     Active Substance: LEUCOVORIN CALCIUM
     Indication: COLORECTAL CANCER METASTATIC
     Dosage: 1 DOSAGE FORM, CYCLICAL
     Route: 042
     Dates: start: 20160705

REACTIONS (13)
  - Conjunctivitis [Unknown]
  - Fatigue [Unknown]
  - Palmar-plantar erythrodysaesthesia syndrome [Unknown]
  - Constipation [Recovered/Resolved]
  - Aspartate aminotransferase increased [Unknown]
  - Asthenia [Unknown]
  - Paronychia [Unknown]
  - Jaundice [Unknown]
  - Rash pustular [Unknown]
  - Vomiting [Recovered/Resolved]
  - Alanine aminotransferase increased [Unknown]
  - Thrombocytopenia [Unknown]
  - Nausea [Recovered/Resolved]

NARRATIVE: CASE EVENT DATE: 2016
